FAERS Safety Report 5842608-2 (Version None)
Quarter: 2008Q3

REPORT INFORMATION
  Report Type: 
  Country: None (occurrence: None)
  Receive Date: 20080812
  Receipt Date: 20080730
  Transmission Date: 20090109
  Serious: Yes (Hospitalization, Disabling)
  Sender: FDA-Public Use
  Company Number: US-ELI_LILLY_AND_COMPANY-US200807006220

PATIENT
  Sex: Female

DRUGS (2)
  1. FORTEO [Suspect]
     Indication: OSTEOPOROSIS
  2. FORTEO [Suspect]
     Dates: start: 20060101

REACTIONS (8)
  - BEDRIDDEN [None]
  - BODY HEIGHT DECREASED [None]
  - LUMBAR VERTEBRAL FRACTURE [None]
  - MALAISE [None]
  - PAIN [None]
  - SPINAL DEFORMITY [None]
  - THORACIC VERTEBRAL FRACTURE [None]
  - VITAMIN D DECREASED [None]
